FAERS Safety Report 24882678 (Version 2)
Quarter: 2025Q1

REPORT INFORMATION
  Report Type: Spontaneous
  Country: US (occurrence: US)
  Receive Date: 20250124
  Receipt Date: 20250303
  Transmission Date: 20250409
  Serious: Yes (Other)
  Sender: TAKEDA
  Company Number: US-TAKEDA-2025TUS004539

PATIENT

DRUGS (3)
  1. ENTYVIO [Suspect]
     Active Substance: VEDOLIZUMAB
     Indication: Product used for unknown indication
  2. ENTYVIO [Suspect]
     Active Substance: VEDOLIZUMAB
     Indication: Product used for unknown indication
  3. ENTYVIO [Suspect]
     Active Substance: VEDOLIZUMAB

REACTIONS (7)
  - Haematochezia [Unknown]
  - Injection site rash [Unknown]
  - Pain [Unknown]
  - Device defective [Unknown]
  - Frequent bowel movements [Unknown]
  - Defaecation urgency [Unknown]
  - Discomfort [Unknown]
